FAERS Safety Report 6702205-3 (Version None)
Quarter: 2010Q2

REPORT INFORMATION
  Report Type: 
  Country: None (occurrence: None)
  Receive Date: 20100429
  Receipt Date: 20100422
  Transmission Date: 20101027
  Serious: Yes (Other)
  Sender: FDA-Public Use
  Company Number: SE-PFIZER INC-2010050860

PATIENT
  Age: 15 Year
  Sex: Female

DRUGS (5)
  1. ZOLOFT [Suspect]
     Dosage: 100 MG, UNK
     Dates: start: 20090801, end: 20100201
  2. ZOLOFT [Suspect]
     Dosage: 125 MG, 1X/DAY
     Dates: start: 20100201
  3. HIPREX [Concomitant]
     Dosage: UNK
  4. FLUCONAZOLE [Concomitant]
     Dosage: UNK
  5. CELEBREX [Concomitant]
     Dosage: UNK

REACTIONS (4)
  - AMNESIA [None]
  - FEELING ABNORMAL [None]
  - MENTAL IMPAIRMENT [None]
  - OVERDOSE [None]
